FAERS Safety Report 9656041 (Version 2)
Quarter: 2013Q4

REPORT INFORMATION
  Report Type: Spontaneous
  Country: DE (occurrence: DE)
  Receive Date: 20131030
  Receipt Date: 20131030
  Transmission Date: 20140711
  Serious: Yes (Hospitalization)
  Sender: FDA-Public Use
  Company Number: DE-JNJFOC-20130808654

PATIENT
  Sex: Male
  Weight: 81.2 kg

DRUGS (11)
  1. REMINYL [Suspect]
     Indication: DEMENTIA
     Route: 048
  2. ASS [Suspect]
     Indication: CORONARY ARTERY DISEASE
     Route: 048
  3. ASS [Suspect]
     Indication: VASCULAR GRAFT
     Route: 048
  4. METOPROLOL [Suspect]
     Indication: CORONARY ARTERY DISEASE
     Route: 048
  5. METOPROLOL [Suspect]
     Indication: VASCULAR GRAFT
     Route: 048
  6. AMLODIPINE [Suspect]
     Indication: CORONARY ARTERY DISEASE
     Route: 048
  7. AMLODIPINE [Suspect]
     Indication: VASCULAR GRAFT
     Route: 048
  8. VALSARTAN [Concomitant]
     Indication: HYPERTENSION
     Route: 048
  9. INSUMAN RAPID [Concomitant]
     Indication: DIABETES MELLITUS
     Route: 058
  10. GLIMEPIRIDE [Concomitant]
     Indication: DIABETES MELLITUS
     Route: 048
     Dates: start: 20130810, end: 20130812
  11. CLEXANE [Concomitant]
     Indication: THROMBOSIS PROPHYLAXIS
     Route: 058
     Dates: start: 20130810, end: 20130820

REACTIONS (1)
  - Hyponatraemia [Recovered/Resolved]
